FAERS Safety Report 8922777 (Version 3)
Quarter: 2013Q4

REPORT INFORMATION
  Report Type: Spontaneous
  Country: US (occurrence: US)
  Receive Date: 20121125
  Receipt Date: 20131121
  Transmission Date: 20140711
  Serious: Yes (Other)
  Sender: FDA-Public Use
  Company Number: US-BAYER-2012-120756

PATIENT
  Age: 31 Year
  Sex: Female
  Weight: 82.99 kg

DRUGS (2)
  1. MIRENA [Suspect]
     Indication: CONTRACEPTION
     Dosage: 20 MCG/24HR, CONT
     Route: 015
     Dates: start: 20120717, end: 20121029
  2. IMITREX [Concomitant]
     Dosage: UNK

REACTIONS (8)
  - Rectal perforation [Recovered/Resolved]
  - Device dislocation [Recovered/Resolved]
  - Pregnancy with contraceptive device [None]
  - Drug ineffective [None]
  - Benign hydatidiform mole [None]
  - Abortion spontaneous [None]
  - Haemorrhage in pregnancy [None]
  - Uterine haemorrhage [None]
